FAERS Safety Report 24804570 (Version 3)
Quarter: 2025Q1

REPORT INFORMATION
  Report Type: Spontaneous
  Country: GB (occurrence: GB)
  Receive Date: 20250103
  Receipt Date: 20250121
  Transmission Date: 20250409
  Serious: Yes (Hospitalization, Other)
  Sender: MYLAN
  Company Number: GB-MYLANLABS-2024M1117899

PATIENT
  Sex: Male
  Weight: 109 kg

DRUGS (6)
  1. CLOZARIL [Suspect]
     Active Substance: CLOZAPINE
     Indication: Schizophrenia
     Route: 048
     Dates: start: 20241206
  2. CLOZARIL [Suspect]
     Active Substance: CLOZAPINE
     Dosage: 100 MILLIGRAM, BID
     Route: 048
     Dates: start: 20241209, end: 20241228
  3. OLANZAPINE [Concomitant]
     Active Substance: OLANZAPINE
     Indication: Schizophrenia
     Dosage: UNK, QD (UPTO 15MG, ONCE DAILY)
     Route: 048
     Dates: start: 20241122
  4. PROPRANOLOL [Concomitant]
     Active Substance: PROPRANOLOL HYDROCHLORIDE
     Indication: Tachycardia
     Dosage: 10 MILLIGRAM, QD (ONCE DAILY)
     Route: 048
     Dates: start: 20241125
  5. LORAZEPAM [Concomitant]
     Active Substance: LORAZEPAM
     Indication: Catatonia
     Route: 048
     Dates: start: 20241122
  6. FORTISIP COMPACT PROTEIN [Concomitant]
     Indication: Hypophagia
     Dosage: UNK, QD (ONCE DAILY)
     Route: 048
     Dates: start: 20241202

REACTIONS (7)
  - Hospitalisation [Unknown]
  - Cardiotoxicity [Unknown]
  - Hypoxia [Recovered/Resolved]
  - Pneumonia [Recovered/Resolved]
  - Myocarditis [Recovered/Resolved]
  - Epistaxis [Unknown]
  - Tachycardia [Recovered/Resolved]
